FAERS Safety Report 20530749 (Version 2)
Quarter: 2022Q1

REPORT INFORMATION
  Report Type: Report from Study
  Country: PA (occurrence: PA)
  Receive Date: 20220301
  Receipt Date: 20220331
  Transmission Date: 20220423
  Serious: Yes (Other)
  Sender: FDA-Public Use
  Company Number: PA-NOVARTISPH-NVSC2022PA040766

PATIENT
  Age: 69 Year
  Sex: Female

DRUGS (1)
  1. KISQALI [Suspect]
     Active Substance: RIBOCICLIB
     Indication: Breast cancer metastatic
     Dosage: 600 MG, QD
     Route: 048
     Dates: start: 20220212

REACTIONS (15)
  - Diabetes mellitus [Unknown]
  - Metastases to lung [Unknown]
  - Nausea [Unknown]
  - Discomfort [Unknown]
  - Dizziness [Unknown]
  - Decreased immune responsiveness [Unknown]
  - Muscle spasms [Unknown]
  - Feeling abnormal [Unknown]
  - Eating disorder [Unknown]
  - Injection site discomfort [Unknown]
  - Abdominal discomfort [Unknown]
  - Anxiety [Unknown]
  - Diarrhoea [Unknown]
  - Asthenia [Unknown]
  - Vomiting [Unknown]

NARRATIVE: CASE EVENT DATE: 20220311
